FAERS Safety Report 9288899 (Version 1)
Quarter: 2013Q2

REPORT INFORMATION
  Report Type: Spontaneous
  Country: US (occurrence: US)
  Receive Date: 20130514
  Receipt Date: 20130514
  Transmission Date: 20140414
  Serious: Yes (Hospitalization)
  Sender: FDA-Public Use
  Company Number: US-VIROPHARMA INCORPORATED-20130502CINRY4243

PATIENT
  Age: 40 Year
  Sex: Male

DRUGS (4)
  1. CINRYZE (C1 ESTERASE INHIBITOR (HUMAN)) [Suspect]
     Indication: HEREDITARY ANGIOEDEMA
  2. CINRYZE (C1 ESTERASE INHIBITOR (HUMAN)) [Suspect]
     Indication: PROPHYLAXIS
  3. LOVENOX [Concomitant]
     Indication: ANTICOAGULANT THERAPY
     Dosage: UNKNOWN
     Route: 065
     Dates: start: 2012
  4. COUMADIN [Concomitant]
     Indication: ANTICOAGULANT THERAPY
     Dosage: UNKNOWN
     Route: 065
     Dates: start: 2012

REACTIONS (12)
  - Device related infection [Recovered/Resolved]
  - Central venous catheterisation [Recovered/Resolved]
  - Hereditary angioedema [Not Recovered/Not Resolved]
  - Therapy change [Not Recovered/Not Resolved]
  - Inappropriate schedule of drug administration [Not Recovered/Not Resolved]
  - Off label use [Recovered/Resolved]
  - Catheter site swelling [Unknown]
  - Infusion related reaction [Unknown]
  - Infusion related reaction [Unknown]
  - Infusion related reaction [Unknown]
  - Dizziness [Unknown]
  - Influenza like illness [Unknown]
